FAERS Safety Report 6263990-0 (Version None)
Quarter: 2009Q3

REPORT INFORMATION
  Report Type: 
  Country: None (occurrence: None)
  Receive Date: 20090708
  Receipt Date: 20090708
  Transmission Date: 20100115
  Serious: Yes (Life-Threatening)
  Sender: FDA-Public Use
  Company Number: None

PATIENT
  Age: 66 Year
  Sex: Female
  Weight: 58.9676 kg

DRUGS (2)
  1. ZICAN NASAL SPRAY [Suspect]
     Indication: SINUS DISORDER
     Dosage: AS DIRECTED
     Dates: start: 20041101, end: 20061101
  2. ZICAM NOSE SWABS [Suspect]
     Indication: SINUS DISORDER
     Dosage: AS DIRECTED
     Dates: start: 20041101, end: 20061101

REACTIONS (2)
  - AGEUSIA [None]
  - ANOSMIA [None]
